FAERS Safety Report 15404655 (Version 1)
Quarter: 2018Q3

REPORT INFORMATION
  Report Type: Spontaneous
  Country: US (occurrence: US)
  Receive Date: 20180919
  Receipt Date: 20180919
  Transmission Date: 20181010
  Serious: Yes (Other)
  Sender: FDA-Public Use
  Company Number: US-GLAXOSMITHKLINE-US2018167260

PATIENT
  Sex: Female

DRUGS (1)
  1. FLOVENT DISKUS [Suspect]
     Active Substance: FLUTICASONE PROPIONATE
     Indication: CHRONIC OBSTRUCTIVE PULMONARY DISEASE
     Dosage: UNK UNK, U
     Route: 055

REACTIONS (4)
  - Visual impairment [Unknown]
  - Drug dose omission [Unknown]
  - Wrong technique in device usage process [Unknown]
  - Cataract [Unknown]
